FAERS Safety Report 9713752 (Version 1)
Quarter: 2013Q4

REPORT INFORMATION
  Report Type: Spontaneous
  Country: US (occurrence: US)
  Receive Date: 20131126
  Receipt Date: 20131126
  Transmission Date: 20140711
  Serious: Yes (Other)
  Sender: FDA-Public Use
  Company Number: US-JHP PHARMACEUTICALS, LLC-JHP201300720

PATIENT
  Age: 18 Month
  Sex: Female

DRUGS (1)
  1. ADRENALIN [Suspect]
     Indication: ANAPHYLACTIC REACTION
     Dosage: UNK, SINGLE
     Route: 030
     Dates: start: 20081129, end: 20081129

REACTIONS (2)
  - Anaphylactic reaction [Unknown]
  - Disease recurrence [Unknown]
